FAERS Safety Report 4484783-0 (Version None)
Quarter: 2004Q3

REPORT INFORMATION
  Report Type: 
  Country: None (occurrence: None)
  Receive Date: 20040921
  Receipt Date: 20031124
  Transmission Date: 20050211
  Serious: Yes (Hospitalization, Other)
  Sender: FDA-Public Use
  Company Number: 163-20785-03110514(0)

PATIENT
  Age: 58 Year
  Sex: Female
  Weight: 73.3 kg

DRUGS (13)
  1. THALOMID [Suspect]
     Indication: GLIOBLASTOMA MULTIFORME
     Dosage: SEE IMAGE
     Route: 048
     Dates: start: 20031023, end: 20031103
  2. THALOMID [Suspect]
     Indication: GLIOBLASTOMA MULTIFORME
     Dosage: SEE IMAGE
     Route: 048
     Dates: start: 20031104, end: 20031111
  3. TEMODAR (TEMOZOLAMIDE) [Concomitant]
  4. CELEBREX [Concomitant]
  5. LASIX [Concomitant]
  6. PREMARIN [Concomitant]
  7. DECADRON [Concomitant]
  8. LEXAPRO [Concomitant]
  9. AMBIEN [Concomitant]
  10. NEXIUM [Concomitant]
  11. ATIVAN [Concomitant]
  12. ZOFRAN [Concomitant]
  13. DILANTIN [Concomitant]

REACTIONS (13)
  - BALANCE DISORDER [None]
  - DEPRESSED LEVEL OF CONSCIOUSNESS [None]
  - DEPRESSION [None]
  - FATIGUE [None]
  - GRAND MAL CONVULSION [None]
  - HEADACHE [None]
  - HYPOAESTHESIA [None]
  - MUSCULOSKELETAL STIFFNESS [None]
  - OEDEMA PERIPHERAL [None]
  - RESTLESSNESS [None]
  - SEDATION [None]
  - SOMNOLENCE [None]
  - TREMOR [None]
